FAERS Safety Report 5921547-2 (Version None)
Quarter: 2008Q3

REPORT INFORMATION
  Report Type: 
  Country: None (occurrence: None)
  Receive Date: 20080909
  Receipt Date: 20080401
  Transmission Date: 20090109
  Serious: Yes (Death, Hospitalization)
  Sender: FDA-Public Use
  Company Number: 163-20785-07101385

PATIENT
  Age: 84 Year
  Sex: Female

DRUGS (2)
  1. THALOMID [Suspect]
     Indication: MULTIPLE MYELOMA
     Dosage: 200 MG, QD, ORAL ; 100 MG, QD, ORAL
     Route: 048
     Dates: start: 20070413, end: 20070801
  2. THALOMID [Suspect]
     Indication: MULTIPLE MYELOMA
     Dosage: 200 MG, QD, ORAL ; 100 MG, QD, ORAL
     Route: 048
     Dates: start: 20070918

REACTIONS (2)
  - FALL [None]
  - HIP FRACTURE [None]
